FAERS Safety Report 8968142 (Version 1)
Quarter: 2012Q4

REPORT INFORMATION
  Report Type: 
  Country: CH (occurrence: CH)
  Receive Date: 20121218
  Receipt Date: 20121218
  Transmission Date: 20130627
  Serious: Yes (Hospitalization, Other)
  Sender: FDA-Public Use
  Company Number: CH-JNJFOC-20121206158

PATIENT
  Age: 46 Year
  Sex: Female

DRUGS (5)
  1. DARUNAVIR [Suspect]
     Indication: HIV INFECTION
     Route: 048
     Dates: start: 20120425
  2. RITONAVIR [Suspect]
     Indication: HIV INFECTION
     Route: 065
     Dates: start: 20120425
  3. EMTRICITABINE W/TENOFOVIR [Suspect]
     Indication: HIV INFECTION
     Dosage: emtricitabine 200 mg; tenofovir 245 mg
     Route: 065
     Dates: start: 20120425
  4. ESOMEPRAZOLE [Interacting]
     Indication: GASTROOESOPHAGEAL REFLUX DISEASE
     Route: 065
     Dates: start: 20120422
  5. ESCITALOPRAM [Interacting]
     Indication: DEPRESSION
     Dosage: had been taking for 5 years
     Route: 065

REACTIONS (2)
  - Serotonin syndrome [Recovered/Resolved]
  - Drug interaction [Recovered/Resolved]
